FAERS Safety Report 7315211-5 (Version None)
Quarter: 2011Q1

REPORT INFORMATION
  Report Type: 
  Country: None (occurrence: None)
  Receive Date: 20110225
  Receipt Date: 20110215
  Transmission Date: 20110831
  Serious: Yes (Other)
  Sender: FDA-Public Use
  Company Number: US-EISAI INC-E2020-08647-CLI-US

PATIENT
  Sex: Female
  Weight: 59 kg

DRUGS (4)
  1. ARICEPT [Suspect]
     Route: 048
     Dates: start: 20100911, end: 20101108
  2. ARICEPT [Suspect]
     Route: 048
     Dates: start: 20100901, end: 20100908
  3. ARICEPT [Suspect]
     Route: 048
     Dates: start: 20100721, end: 20100831
  4. SYNTHROID [Concomitant]
     Dates: start: 20100511

REACTIONS (1)
  - HY'S LAW CASE [None]
